FAERS Safety Report 5332211-5 (Version None)
Quarter: 2007Q1

REPORT INFORMATION
  Report Type: 
  Country: None (occurrence: None)
  Receive Date: 20070306
  Receipt Date: 20060425
  Transmission Date: 20070707
  Serious: Yes (Other)
  Sender: FDA-Public Use
  Company Number: A03200602689

PATIENT

DRUGS (2)
  1. PLAVIX [Suspect]
     Indication: CORONARY ARTERY OCCLUSION
     Dosage: 75 MG QD - ORAL
     Route: 048
     Dates: end: 20060401
  2. ACETYLSALICYLIC ACID SRT [Suspect]
     Dosage: ORAL
     Route: 048
     Dates: end: 20060401

REACTIONS (3)
  - ECCHYMOSIS [None]
  - EYE HAEMORRHAGE [None]
  - EYE SWELLING [None]
